FAERS Safety Report 8337535-5 (Version None)
Quarter: 2012Q2

REPORT INFORMATION
  Report Type: 
  Country: None (occurrence: None)
  Receive Date: 20120504
  Receipt Date: 20120502
  Transmission Date: 20120825
  Serious: No
  Sender: FDA-Public Use
  Company Number: US-PFIZER INC-2012108586

PATIENT
  Age: 60 Year
  Sex: Female

DRUGS (1)
  1. NEURONTIN [Suspect]
     Indication: DIABETIC NEUROPATHY
     Dosage: 400 MG, 4X/DAY

REACTIONS (1)
  - DRUG SCREEN FALSE POSITIVE [None]
